FAERS Safety Report 7453218-8 (Version None)
Quarter: 2011Q2

REPORT INFORMATION
  Report Type: 
  Country: None (occurrence: None)
  Receive Date: 20110502
  Receipt Date: 20110422
  Transmission Date: 20111010
  Serious: Yes (Other)
  Sender: FDA-Public Use
  Company Number: US-ASTRAZENECA-2011SE23360

PATIENT
  Age: 66 Year
  Sex: Male
  Weight: 10 kg

DRUGS (13)
  1. AMBIEN [Concomitant]
     Indication: SLEEP DISORDER
  2. NITROGLYCERIN [Concomitant]
     Indication: CHEST PAIN
  3. NEXIUM [Suspect]
     Indication: GASTROOESOPHAGEAL REFLUX DISEASE
     Route: 048
     Dates: start: 20010101
  4. ASPIRIN [Concomitant]
  5. VITAMIN D [Concomitant]
     Dosage: 50000 WEEK
  6. WELCHOL [Concomitant]
     Dates: start: 20110101
  7. BENICAR HCT [Concomitant]
     Indication: HYPERTENSION
     Dosage: 20 12.5 DAILY
  8. PLAVIX [Concomitant]
     Dates: start: 20080101
  9. METOPROLOL SUCCINATE EXTENDED RELEASE [Concomitant]
  10. FLUORIDE RINSE COLGATE 2% [Concomitant]
     Dosage: UNKNOWN DOSE DAILY
  11. ISOSORBIDE MN ER [Concomitant]
     Indication: CHEST PAIN
  12. NOVOLG INSULIN [Concomitant]
     Indication: DIABETES MELLITUS
     Dosage: UNKNOWN DOSE AS RQUIRED
  13. LANTUS [Concomitant]
     Indication: DIABETES MELLITUS
     Dosage: 15 UNITS AS REQUIRED

REACTIONS (5)
  - TINNITUS [None]
  - TYPE 2 DIABETES MELLITUS [None]
  - HYPERTENSION [None]
  - CORONARY ARTERIAL STENT INSERTION [None]
  - CHEST PAIN [None]
